APPROVED DRUG PRODUCT: ARMODAFINIL
Active Ingredient: ARMODAFINIL
Strength: 250MG
Dosage Form/Route: TABLET;ORAL
Application: A200751 | Product #005 | TE Code: AB
Applicant: LUPIN LTD
Approved: Nov 28, 2016 | RLD: No | RS: No | Type: RX